FAERS Safety Report 12741650 (Version 19)
Quarter: 2021Q4

REPORT INFORMATION
  Report Type: Report from Study
  Country: CA (occurrence: CA)
  Receive Date: 20160914
  Receipt Date: 20211220
  Transmission Date: 20220303
  Serious: Yes (Hospitalization, Other)
  Sender: FDA-Public Use
  Company Number: CA-TAKEDA-2016TUS015938

PATIENT
  Age: 34 Year
  Sex: Male

DRUGS (29)
  1. VEDOLIZUMAB [Suspect]
     Active Substance: VEDOLIZUMAB
     Indication: Crohn^s disease
     Dosage: 300 MILLIGRAM
     Route: 042
     Dates: start: 20160722
  2. VEDOLIZUMAB [Suspect]
     Active Substance: VEDOLIZUMAB
     Dosage: 300 MILLIGRAM
     Route: 042
  3. VEDOLIZUMAB [Suspect]
     Active Substance: VEDOLIZUMAB
     Dosage: 300 MILLIGRAM
     Route: 042
  4. VEDOLIZUMAB [Suspect]
     Active Substance: VEDOLIZUMAB
     Dosage: 300 MILLIGRAM
     Route: 042
  5. VEDOLIZUMAB [Suspect]
     Active Substance: VEDOLIZUMAB
     Dosage: 300 MILLIGRAM
     Route: 042
  6. VEDOLIZUMAB [Suspect]
     Active Substance: VEDOLIZUMAB
     Dosage: 300 MILLIGRAM
     Route: 042
  7. VEDOLIZUMAB [Suspect]
     Active Substance: VEDOLIZUMAB
     Dosage: 300 MILLIGRAM
     Route: 042
  8. VEDOLIZUMAB [Suspect]
     Active Substance: VEDOLIZUMAB
     Dosage: 300 MILLIGRAM
     Route: 042
  9. VEDOLIZUMAB [Suspect]
     Active Substance: VEDOLIZUMAB
     Dosage: 300 MILLIGRAM
     Route: 042
  10. PREDNISONE [Concomitant]
     Active Substance: PREDNISONE
     Indication: Crohn^s disease
     Dosage: UNK
  11. CYCLOSPORINE [Concomitant]
     Active Substance: CYCLOSPORINE
     Indication: Immunosuppressant drug therapy
     Dosage: 200 MILLIGRAM, BID
  12. NOVO MYCOPHENOLATE [Concomitant]
     Indication: Immunosuppressant drug therapy
     Dosage: UNK UNK, BID
     Dates: start: 20151123
  13. WARFARIN [Concomitant]
     Active Substance: WARFARIN
     Indication: Anticoagulant therapy
     Dosage: UNK
     Dates: start: 201511
  14. WARFARIN [Concomitant]
     Active Substance: WARFARIN
     Dosage: 7 MILLIGRAM, QD
  15. CLONAZEPAM [Concomitant]
     Active Substance: CLONAZEPAM
     Indication: Depression
     Dosage: 1 MILLIGRAM, TID
  16. VITAMIN D NOS [Concomitant]
     Active Substance: VITAMIN D NOS
     Dosage: 2000 INTERNATIONAL UNIT
  17. TACROLIMUS [Concomitant]
     Active Substance: TACROLIMUS
     Dosage: 4 MILLIGRAM, QD
     Route: 048
     Dates: start: 20170214
  18. MYCOPHENOLIC ACID [Concomitant]
     Active Substance: MYCOPHENOLIC ACID
     Dosage: 750 MILLIGRAM, BID
     Route: 048
     Dates: start: 20160829
  19. AMOXICILLIN\CLAVULANATE POTASSIUM [Concomitant]
     Active Substance: AMOXICILLIN\CLAVULANATE POTASSIUM
     Dosage: UNK, BID
     Route: 048
     Dates: start: 20170210
  20. BACTRIM [Concomitant]
     Active Substance: SULFAMETHOXAZOLE\TRIMETHOPRIM
     Dosage: UNK, QD
     Route: 048
     Dates: start: 20170117
  21. VALACYCLOVIR [Concomitant]
     Active Substance: VALACYCLOVIR HYDROCHLORIDE
     Indication: Herpes zoster
     Dosage: 1 GRAM, TID
     Route: 048
     Dates: start: 20170117
  22. NYSTATIN [Concomitant]
     Active Substance: NYSTATIN
     Dosage: 100000 INTERNATIONAL UNIT, QID
     Dates: start: 20161222
  23. CIPROFLOXACIN [Concomitant]
     Active Substance: CIPROFLOXACIN
     Indication: Cholangitis
     Dosage: 500 MILLIGRAM, BID
     Route: 048
     Dates: start: 20161025
  24. LYRICA [Concomitant]
     Active Substance: PREGABALIN
     Dosage: 50 MILLIGRAM, QD
     Route: 048
     Dates: start: 20170213
  25. NEURONTIN [Concomitant]
     Active Substance: GABAPENTIN
     Dosage: 900 MILLIGRAM, TID
     Route: 048
     Dates: start: 20170127
  26. INNOHEP [Concomitant]
     Active Substance: TINZAPARIN SODIUM
     Dosage: 13000 INTERNATIONAL UNIT, QD
     Route: 058
     Dates: start: 20170213
  27. COUMADIN [Concomitant]
     Active Substance: WARFARIN SODIUM
     Dosage: 7 MILLIGRAM
     Route: 048
     Dates: start: 20161017
  28. IMOVANE [Concomitant]
     Active Substance: ZOPICLONE
     Dosage: 7.5 MILLIGRAM
     Route: 048
     Dates: start: 20170117
  29. CALCIUM [Concomitant]
     Active Substance: CALCIUM
     Dosage: 500 MILLIGRAM, BID
     Route: 048
     Dates: start: 20161206

REACTIONS (17)
  - Liver transplant rejection [Unknown]
  - Cholangitis [Recovered/Resolved]
  - Procedural complication [Recovered/Resolved]
  - Intestinal perforation [Recovered/Resolved]
  - Perforation bile duct [Recovered/Resolved]
  - Pancreatic duct rupture [Recovered/Resolved]
  - Biliary catheter insertion [Not Recovered/Not Resolved]
  - Bile duct stenosis [Unknown]
  - Post procedural infection [Recovered/Resolved]
  - Bile duct stent insertion [Unknown]
  - Escherichia bacteraemia [Recovered/Resolved]
  - Clostridium difficile infection [Recovered/Resolved]
  - Hepatic enzyme increased [Unknown]
  - Gastrointestinal pain [Not Recovered/Not Resolved]
  - Somnolence [Not Recovered/Not Resolved]
  - Pain [Not Recovered/Not Resolved]
  - Hepatic pain [Not Recovered/Not Resolved]

NARRATIVE: CASE EVENT DATE: 20160826
